FAERS Safety Report 9742585 (Version 2)
Quarter: 2013Q4

REPORT INFORMATION
  Report Type: Spontaneous
  Country: US (occurrence: US)
  Receive Date: 20131210
  Receipt Date: 20131210
  Transmission Date: 20140711
  Serious: No
  Sender: FDA-Public Use
  Company Number: US-GILEAD-2009-0024527

PATIENT
  Sex: Male
  Weight: 113.4 kg

DRUGS (12)
  1. LETAIRIS [Suspect]
     Indication: PULMONARY ARTERIAL HYPERTENSION
     Route: 048
  2. CLONIDINE HCL [Concomitant]
  3. ATENOLOL [Concomitant]
  4. ENALAPRIL [Concomitant]
  5. CRESTOR [Concomitant]
  6. PLAVIX [Concomitant]
  7. LANTUS [Concomitant]
  8. NOVOLOG [Concomitant]
  9. METFORMIN [Concomitant]
  10. LEVOTHYROXINE [Concomitant]
  11. TRAMADOL [Concomitant]
  12. ASPIRIN [Concomitant]

REACTIONS (1)
  - Oedema [Unknown]
